FAERS Safety Report 25629635 (Version 1)
Quarter: 2025Q3

REPORT INFORMATION
  Report Type: Spontaneous
  Country: US (occurrence: US)
  Receive Date: 20250731
  Receipt Date: 20250731
  Transmission Date: 20251020
  Serious: Yes (Other)
  Sender: Alora Pharma
  Company Number: US-ACELLA PHARMACEUTICALS, LLC-2025ALO02382

PATIENT
  Age: 77 Year
  Sex: Male

DRUGS (1)
  1. AMIODARONE HYDROCHLORIDE [Suspect]
     Active Substance: AMIODARONE HYDROCHLORIDE
     Indication: Atrial fibrillation
     Dates: start: 201706

REACTIONS (4)
  - Exophthalmos [Recovered/Resolved]
  - Periorbital oedema [Recovered/Resolved]
  - Weight decreased [Recovered/Resolved]
  - Graves^ disease [Recovered/Resolved]

NARRATIVE: CASE EVENT DATE: 20200101
